FAERS Safety Report 6317417-0 (Version None)
Quarter: 2009Q3

REPORT INFORMATION
  Report Type: 
  Country: None (occurrence: None)
  Receive Date: 20090820
  Receipt Date: 20090820
  Transmission Date: 20100115
  Serious: Yes (Life-Threatening, Other)
  Sender: FDA-Public Use
  Company Number: None

PATIENT
  Age: 51 Year
  Sex: Female
  Weight: 74.8435 kg

DRUGS (6)
  1. CELEXA [Suspect]
     Indication: ANXIETY
     Dosage: 10-20-30 MG 1 EVERY DAY
     Dates: start: 20090601, end: 20090701
  2. CELEXA [Suspect]
     Indication: DEPRESSION
     Dosage: 10-20-30 MG 1 EVERY DAY
     Dates: start: 20090601, end: 20090701
  3. CELEXA [Suspect]
     Indication: PANIC ATTACK
     Dosage: 10-20-30 MG 1 EVERY DAY
     Dates: start: 20090601, end: 20090701
  4. PRISTIQ [Suspect]
     Indication: ANXIETY
     Dosage: 50 MG 1 EVERY DAY 1 1/2 WEEKS
     Dates: start: 20090701
  5. PRISTIQ [Suspect]
     Indication: DEPRESSION
     Dosage: 50 MG 1 EVERY DAY 1 1/2 WEEKS
     Dates: start: 20090701
  6. PRISTIQ [Suspect]
     Indication: PANIC ATTACK
     Dosage: 50 MG 1 EVERY DAY 1 1/2 WEEKS
     Dates: start: 20090701

REACTIONS (9)
  - ASTHENIA [None]
  - BODY TEMPERATURE DECREASED [None]
  - DIZZINESS [None]
  - DRUG INEFFECTIVE [None]
  - EATING DISORDER [None]
  - INSOMNIA [None]
  - MALAISE [None]
  - SEROTONIN SYNDROME [None]
  - WEIGHT DECREASED [None]
